FAERS Safety Report 9263469 (Version 1)
Quarter: 2013Q1

REPORT INFORMATION
  Report Type: Spontaneous
  Country: US (occurrence: None)
  Receive Date: 20121212
  Receipt Date: 20121212
  Transmission Date: 20140127
  Serious: No
  Sender: FDA-Public Use
  Company Number: 12010USA014570

PATIENT
  Age: 64 Year
  Sex: Female

DRUGS (3)
  1. VICTRELIS [Suspect]
     Route: 048
     Dates: start: 201202
  2. PEGASYS [Suspect]
  3. RIBASPHERE [Suspect]

REACTIONS (9)
  - Transfusion [None]
  - Nausea [None]
  - Abdominal pain upper [None]
  - Swelling [None]
  - Decreased appetite [None]
  - Asthenia [None]
  - Dizziness [None]
  - Nephrolithiasis [None]
  - Cholelithiasis [None]
